FAERS Safety Report 6245751-1 (Version None)
Quarter: 2009Q2

REPORT INFORMATION
  Report Type: 
  Country: None (occurrence: None)
  Receive Date: 20090625
  Receipt Date: 20090618
  Transmission Date: 20091009
  Serious: Yes (Hospitalization, Disabling, Other)
  Sender: FDA-Public Use
  Company Number: US-MERCK-0805USA00410

PATIENT
  Age: 36 Year
  Sex: Male
  Weight: 67 kg

DRUGS (2)
  1. FOSAMAX [Suspect]
     Indication: OSTEOPOROSIS
     Route: 048
     Dates: start: 20020401, end: 20060301
  2. FOSAMAX [Suspect]
     Route: 048
     Dates: start: 20000401, end: 20020401

REACTIONS (31)
  - ABSCESS ORAL [None]
  - ANXIETY [None]
  - ARTHRALGIA [None]
  - BACK PAIN [None]
  - BONE LESION [None]
  - BONE MARROW OEDEMA [None]
  - CARTILAGE INJURY [None]
  - CORNEAL ABRASION [None]
  - DENTAL CARIES [None]
  - DEPRESSION [None]
  - EDENTULOUS [None]
  - EPICONDYLITIS [None]
  - FACET JOINT SYNDROME [None]
  - HYPERSENSITIVITY [None]
  - HYPOAESTHESIA [None]
  - INTERVERTEBRAL DISC PROTRUSION [None]
  - JAW DISORDER [None]
  - LIMB INJURY [None]
  - LUNG NEOPLASM [None]
  - ORAL INFECTION [None]
  - OSTEOARTHROPATHY [None]
  - OSTEOPENIA [None]
  - PAIN IN EXTREMITY [None]
  - PERIODONTAL DISEASE [None]
  - RADICULOPATHY [None]
  - RASH [None]
  - RESORPTION BONE INCREASED [None]
  - ROTATOR CUFF SYNDROME [None]
  - SCIATICA [None]
  - SYNOVITIS [None]
  - TOOTH INFECTION [None]
